FAERS Safety Report 7991098-2 (Version None)
Quarter: 2011Q4

REPORT INFORMATION
  Report Type: 
  Country: None (occurrence: None)
  Receive Date: 20111219
  Receipt Date: 20111208
  Transmission Date: 20120403
  Serious: Yes (Death, Hospitalization, Other)
  Sender: FDA-Public Use
  Company Number: BR-ROCHE-802913

PATIENT
  Age: 79 Year
  Sex: Male

DRUGS (21)
  1. ACTEMRA [Suspect]
     Indication: RHEUMATOID ARTHRITIS
     Route: 042
  2. CALCITRIOL [Concomitant]
  3. FUROSEMIDE [Concomitant]
  4. GABAPENTIN [Concomitant]
  5. LIPITOR [Concomitant]
  6. MABTHERA [Suspect]
     Indication: RHEUMATOID ARTHRITIS
     Route: 065
     Dates: start: 20050101, end: 20110401
  7. PROPANOLOLI HYDROCHLORIDUM [Concomitant]
  8. ZOLEDRONIC [Concomitant]
  9. FUROSEMIDE [Concomitant]
  10. ROCALTROL [Concomitant]
  11. LORAZEPAM [Concomitant]
  12. PANTOPRAZOLE [Concomitant]
  13. METICORTEN [Concomitant]
  14. CALCIUM/VITAMIN D [Concomitant]
  15. METHYLPREDNISONE (UNK INGREDIENTS) [Concomitant]
  16. ATORVASTATIN [Concomitant]
  17. LEUCOVORIN CALCIUM [Concomitant]
  18. VITAMIN B-12 [Concomitant]
  19. TAMSULOSIN HCL [Concomitant]
     Indication: PROSTATIC DISORDER
  20. PANTOPRAZOLE SODIUM [Concomitant]
  21. TRILEPTAL [Concomitant]

REACTIONS (16)
  - LEUKOPENIA [None]
  - THROMBOCYTOPENIA [None]
  - OSTEONECROSIS [None]
  - LUNG NEOPLASM [None]
  - ORAL CANDIDIASIS [None]
  - RENAL FAILURE [None]
  - HYPOTENSION [None]
  - EMPHYSEMA [None]
  - HEPATIC FAILURE [None]
  - PERICARDITIS CONSTRICTIVE [None]
  - DISEASE PROGRESSION [None]
  - URINARY TRACT INFECTION [None]
  - BACTERAEMIA [None]
  - PLEURAL EFFUSION [None]
  - INFECTION [None]
  - PARAPROTEINAEMIA [None]
